FAERS Safety Report 23949749 (Version 2)
Quarter: 2024Q2

REPORT INFORMATION
  Report Type: Spontaneous
  Country: CZ (occurrence: CZ)
  Receive Date: 20240607
  Receipt Date: 20240626
  Transmission Date: 20240716
  Serious: Yes (Life-Threatening, Other)
  Sender: FDA-Public Use
  Company Number: CZ-Accord-427677

PATIENT
  Age: 39 Year
  Sex: Female

DRUGS (6)
  1. ETOPOSIDE [Suspect]
     Active Substance: ETOPOSIDE
     Indication: Anaplastic large cell lymphoma T- and null-cell types
     Dosage: D1-3
     Route: 042
     Dates: start: 20210623, end: 20211012
  2. BRENTUXIMAB VEDOTIN [Suspect]
     Active Substance: BRENTUXIMAB VEDOTIN
     Indication: Anaplastic large cell lymphoma T- and null-cell types
     Dosage: D1
     Route: 042
     Dates: start: 20210623, end: 20211012
  3. CYCLOPHOSPHAMIDE [Suspect]
     Active Substance: CYCLOPHOSPHAMIDE
     Indication: Anaplastic large cell lymphoma T- and null-cell types
     Dosage: D1
     Route: 042
     Dates: start: 20210623, end: 20211012
  4. DOXORUBICIN [Suspect]
     Active Substance: DOXORUBICIN
     Indication: Anaplastic large cell lymphoma T- and null-cell types
     Dosage: D1
     Route: 042
     Dates: start: 20210623, end: 20211012
  5. PREDNISONE [Suspect]
     Active Substance: PREDNISONE
     Indication: Anaplastic large cell lymphoma T- and null-cell types
     Dosage: D1-5
     Route: 048
     Dates: start: 20210623, end: 20211012
  6. FILGRASTIM [Concomitant]
     Active Substance: FILGRASTIM
     Indication: Prophylaxis
     Dates: start: 20210623

REACTIONS (7)
  - Neutropenia [Recovered/Resolved]
  - Raynaud^s phenomenon [Recovered/Resolved]
  - Neuropathy peripheral [Not Recovered/Not Resolved]
  - Nausea [Recovering/Resolving]
  - Vomiting [Recovering/Resolving]
  - Upper respiratory tract infection [Recovering/Resolving]
  - Tonsillitis [Recovering/Resolving]

NARRATIVE: CASE EVENT DATE: 20210101
